FAERS Safety Report 8442021-8 (Version None)
Quarter: 2012Q2

REPORT INFORMATION
  Report Type: 
  Country: None (occurrence: None)
  Receive Date: 20120615
  Receipt Date: 20120606
  Transmission Date: 20120825
  Serious: Yes (Hospitalization)
  Sender: FDA-Public Use
  Company Number: US-JNJFOC-20120509773

PATIENT
  Sex: Male
  Weight: 77.1 kg

DRUGS (4)
  1. PREDNISONE TAB [Concomitant]
  2. REMICADE [Suspect]
     Indication: COLITIS ULCERATIVE
     Route: 042
     Dates: start: 20120504
  3. REMICADE [Suspect]
     Route: 042
     Dates: start: 20120220
  4. PRILOSEC [Concomitant]

REACTIONS (1)
  - COLITIS ULCERATIVE [None]
